FAERS Safety Report 12380561 (Version 1)
Quarter: 2016Q2

REPORT INFORMATION
  Report Type: Report from Study
  Country: BR (occurrence: BR)
  Receive Date: 20160518
  Receipt Date: 20160518
  Transmission Date: 20160815
  Serious: Yes (Other)
  Sender: FDA-Public Use
  Company Number: PHHY2016BR067193

PATIENT
  Sex: Male
  Weight: 65 kg

DRUGS (19)
  1. OMEPRAZOLE. [Concomitant]
     Active Substance: OMEPRAZOLE
     Indication: ABDOMINAL HERNIA
     Dosage: 20 MG, UNK
     Route: 065
  2. QUETIAPINE. [Concomitant]
     Active Substance: QUETIAPINE
     Indication: SEDATION
     Dosage: 100 MG, BID, (1 TABLET IN THE MORNING AND AT NIGHT)
     Route: 048
  3. ATROVENT [Concomitant]
     Active Substance: IPRATROPIUM BROMIDE
     Indication: PRODUCT USED FOR UNKNOWN INDICATION
     Dosage: 3 TO 4 TIMES A DAY
     Route: 065
  4. RANITIDINE. [Concomitant]
     Active Substance: RANITIDINE
     Indication: PRODUCT USED FOR UNKNOWN INDICATION
     Route: 065
  5. EXELON PATCH [Suspect]
     Active Substance: RIVASTIGMINE
     Indication: DEMENTIA ALZHEIMER^S TYPE
     Dosage: 1 DF, QD
     Route: 062
  6. NEOTIAPIM [Suspect]
     Active Substance: QUETIAPINE
     Indication: SEDATION
     Dosage: 100 MG, BID (1 TABLET IN THE MORNING AND AT NIGHT)
     Route: 048
  7. ALOIS [Concomitant]
     Active Substance: MEMANTINE
     Indication: PRODUCT USED FOR UNKNOWN INDICATION
     Dosage: 10 MG, UNK
     Route: 048
  8. EXELON PATCH [Suspect]
     Active Substance: RIVASTIGMINE
     Dosage: PATCH 10 (CM2)
     Route: 062
  9. EXELON PATCH [Suspect]
     Active Substance: RIVASTIGMINE
     Dosage: PATCH 15 (CM2)
     Route: 062
  10. SIMVASTATIN. [Concomitant]
     Active Substance: SIMVASTATIN
     Indication: PRODUCT USED FOR UNKNOWN INDICATION
     Route: 065
  11. NEOTIAPIM [Suspect]
     Active Substance: QUETIAPINE
     Dosage: 50 MG, QD
     Route: 048
  12. MUVINLAX [Suspect]
     Active Substance: ELECTROLYTES NOS\POLYETHYLENE GLYCOL 3350
     Indication: FUNCTIONAL GASTROINTESTINAL DISORDER
  13. DEPAKOTE [Concomitant]
     Active Substance: DIVALPROEX SODIUM
     Indication: SEDATION
     Dosage: 500 MG, QD
     Route: 048
  14. COMBODART [Concomitant]
     Active Substance: DUTASTERIDE\TAMSULOSIN
     Indication: PRODUCT USED FOR UNKNOWN INDICATION
     Dosage: UNK, QD
     Route: 048
  15. MUVINLAX [Suspect]
     Active Substance: ELECTROLYTES NOS\POLYETHYLENE GLYCOL 3350
     Indication: CONSTIPATION
     Dosage: UNK, BID (1 TABLET IN THE MORNING AND 1 AT NIGHT)
     Route: 065
  16. VASOGARD [Concomitant]
     Active Substance: CILOSTAZOL
     Indication: PRODUCT USED FOR UNKNOWN INDICATION
     Route: 065
  17. DOMPERIDONE [Suspect]
     Active Substance: DOMPERIDONE
     Indication: PRODUCT USED FOR UNKNOWN INDICATION
     Dosage: UNK
     Route: 065
  18. SUSTRATE [Concomitant]
     Active Substance: PROPATYL NITRATE
     Indication: CARDIAC DISORDER
     Dosage: 10 MG, BID
     Route: 048
  19. SUSTRATE [Concomitant]
     Active Substance: PROPATYL NITRATE
     Dosage: 10 MG, TID
     Route: 048

REACTIONS (15)
  - Scratch [Unknown]
  - Abdominal hernia [Unknown]
  - Dyspnoea [Unknown]
  - Product use issue [Unknown]
  - Hypersensitivity [Unknown]
  - Irritability [Unknown]
  - Functional gastrointestinal disorder [Unknown]
  - Nervousness [Unknown]
  - Application site discolouration [Not Recovered/Not Resolved]
  - Malaise [Unknown]
  - Dementia Alzheimer^s type [Unknown]
  - Fatigue [Unknown]
  - Emphysema [Unknown]
  - Amnesia [Unknown]
  - Constipation [Unknown]
